FAERS Safety Report 16816933 (Version 1)
Quarter: 2019Q3

REPORT INFORMATION
  Report Type: Spontaneous
  Country: US (occurrence: US)
  Receive Date: 20190917
  Receipt Date: 20190917
  Transmission Date: 20191005
  Serious: No
  Sender: FDA-Public Use
  Company Number: US-ALLERGAN-1933422US

PATIENT
  Age: 54 Year
  Sex: Female
  Weight: 126.53 kg

DRUGS (2)
  1. LINZESS [Suspect]
     Active Substance: LINACLOTIDE
     Indication: CONSTIPATION
     Dosage: 290 ?G, QD, 30 MINS BEFORE MEALS
     Route: 048
     Dates: end: 20190811
  2. ALBUTEROL SULFATE W/IPRATROPIUM BROMIDE [Concomitant]
     Active Substance: ALBUTEROL SULFATE\IPRATROPIUM BROMIDE
     Indication: ASTHMA
     Dosage: UNK UNK, PRN

REACTIONS (8)
  - Product storage error [Unknown]
  - Nausea [Unknown]
  - Feeling abnormal [Unknown]
  - Abdominal distension [Unknown]
  - Dizziness [Unknown]
  - Dyschezia [Recovering/Resolving]
  - Dyspnoea [Recovering/Resolving]
  - Drug ineffective [Unknown]

NARRATIVE: CASE EVENT DATE: 20190810
